FAERS Safety Report 4834522-6 (Version None)
Quarter: 2005Q4

REPORT INFORMATION
  Report Type: 
  Country: None (occurrence: None)
  Receive Date: 20051122
  Receipt Date: 20050126
  Transmission Date: 20060501
  Serious: No
  Sender: FDA-Public Use
  Company Number: US-BRISTOL-MYERS SQUIBB COMPANY-12838819

PATIENT
  Age: 84 Year
  Sex: Female
  Weight: 61 kg

DRUGS (14)
  1. PRAVACHOL [Suspect]
     Indication: BLOOD CHOLESTEROL INCREASED
     Route: 048
  2. NADOLOL [Concomitant]
  3. LISINOPRIL [Concomitant]
  4. CELEXA [Concomitant]
  5. ASPIRIN [Concomitant]
  6. AZOPT [Concomitant]
  7. OCUPRESS [Concomitant]
     Route: 047
  8. GREEN TEA [Concomitant]
  9. ASCORBIC ACID [Concomitant]
     Indication: POOR PERIPHERAL CIRCULATION
  10. VITAMIN D [Concomitant]
  11. CO-Q-10 [Concomitant]
  12. OMEGA-3 [Concomitant]
  13. HORSE-CHESTNUT [Concomitant]
  14. BUTCHER BROOM [Concomitant]

REACTIONS (1)
  - OEDEMA PERIPHERAL [None]
